FAERS Safety Report 21348436 (Version 1)
Quarter: 2022Q3

REPORT INFORMATION
  Report Type: Spontaneous
  Country: US (occurrence: None)
  Receive Date: 20220916
  Receipt Date: 20220916
  Transmission Date: 20221027
  Serious: Yes (Death)
  Sender: FDA-Public Use
  Company Number: None

PATIENT
  Age: 56 Year
  Sex: Female

DRUGS (11)
  1. XALKORI [Suspect]
     Active Substance: CRIZOTINIB
     Indication: Lung neoplasm malignant
     Dosage: FREQUENCY : TWICE A DAY;?
     Route: 048
     Dates: start: 20220727
  2. MIRTAZAPINE [Concomitant]
     Active Substance: MIRTAZAPINE
  3. XARELTO [Concomitant]
     Active Substance: RIVAROXABAN
  4. FOLIC ACID [Concomitant]
     Active Substance: FOLIC ACID
  5. Morphine Sulf IR [Concomitant]
  6. PREDNISONE [Concomitant]
     Active Substance: PREDNISONE
  7. FENTANYL [Concomitant]
     Active Substance: FENTANYL
  8. INTEGRA F [Concomitant]
     Active Substance: ASCORBIC ACID\FERROUS ASPARTO GLYCINATE\FERROUS FUMARATE\FOLIC ACID\NIACIN
  9. ALPRAZOLAM [Concomitant]
     Active Substance: ALPRAZOLAM
  10. LACTULOSE [Concomitant]
     Active Substance: LACTULOSE
  11. METOCLOPRAMIDE [Concomitant]
     Active Substance: METOCLOPRAMIDE

REACTIONS (1)
  - Death [None]

NARRATIVE: CASE EVENT DATE: 20220901
